FAERS Safety Report 4972330-6 (Version None)
Quarter: 2006Q1

REPORT INFORMATION
  Report Type: 
  Country: None (occurrence: None)
  Receive Date: 20060215
  Receipt Date: 20051208
  Transmission Date: 20060701
  Serious: No
  Sender: FDA-Public Use
  Company Number: US200512001631

PATIENT
  Age: 76 Year
  Sex: Male

DRUGS (1)
  1. CIALIS [Suspect]
     Indication: ERECTILE DYSFUNCTION
     Dosage: 10 MG, ORAL
     Route: 048
     Dates: start: 20050101

REACTIONS (3)
  - DRUG INEFFECTIVE [None]
  - INTENTIONAL DRUG MISUSE [None]
  - THERAPEUTIC RESPONSE DECREASED [None]
